FAERS Safety Report 7122024-6 (Version None)
Quarter: 2010Q4

REPORT INFORMATION
  Report Type: 
  Country: None (occurrence: None)
  Receive Date: 20101124
  Receipt Date: 20101118
  Transmission Date: 20110411
  Serious: Yes (Hospitalization)
  Sender: FDA-Public Use
  Company Number: A0894605A

PATIENT
  Age: 72 Year
  Sex: Male

DRUGS (1)
  1. COREG CR [Suspect]
     Dosage: 20MG UNKNOWN
     Route: 065
     Dates: start: 20090606

REACTIONS (1)
  - ARTERIAL BYPASS OPERATION [None]
